FAERS Safety Report 7229244-0 (Version None)
Quarter: 2011Q1

REPORT INFORMATION
  Report Type: 
  Country: None (occurrence: None)
  Receive Date: 20110117
  Receipt Date: 20110106
  Transmission Date: 20110831
  Serious: Yes (Hospitalization, Other)
  Sender: FDA-Public Use
  Company Number: FR-PURDUE-GBR-2011-0007589

PATIENT
  Age: 40 Year
  Sex: Female

DRUGS (1)
  1. NON-PMN BUPRENORPHINE [Suspect]
     Indication: DRUG ABUSE
     Route: 013

REACTIONS (2)
  - DRUG ABUSE [None]
  - LIVIDITY [None]
